FAERS Safety Report 9196931 (Version 1)
Quarter: 2013Q1

REPORT INFORMATION
  Report Type: Spontaneous
  Country: US (occurrence: US)
  Receive Date: 20130328
  Receipt Date: 20130328
  Transmission Date: 20140127
  Serious: No
  Sender: FDA-Public Use
  Company Number: US-PFIZER INC-2013096807

PATIENT
  Age: 52 Year
  Sex: Female

DRUGS (8)
  1. SUTENT [Suspect]
     Indication: METASTATIC RENAL CELL CARCINOMA
     Dosage: 50 MG, 1X/DAY
  2. SUTENT [Suspect]
     Indication: METASTASES TO LUNG
  3. SUTENT [Suspect]
     Indication: METASTASES TO SPINE
  4. XGEVA [Concomitant]
     Dosage: UNK, MONTHLY
  5. GEMFIBROZIL [Concomitant]
     Dosage: UNK
  6. DILTIAZEM [Concomitant]
     Dosage: UNK
  7. ESTRADIOL [Concomitant]
     Dosage: UNK
  8. IRON [Concomitant]

REACTIONS (12)
  - Lip discolouration [Unknown]
  - Hyperkeratosis [Unknown]
  - Oral discomfort [Unknown]
  - Rash macular [Unknown]
  - Abdominal distension [Unknown]
  - Pain in extremity [Unknown]
  - Dysgeusia [Unknown]
  - Diarrhoea [Unknown]
  - Hair colour changes [Unknown]
  - Fatigue [Unknown]
  - Flatulence [Unknown]
  - Blood pressure increased [Unknown]
